FAERS Safety Report 7471587-X (Version None)
Quarter: 2011Q2

REPORT INFORMATION
  Report Type: 
  Country: None (occurrence: None)
  Receive Date: 20110511
  Receipt Date: 20110426
  Transmission Date: 20111010
  Serious: Yes (Hospitalization, Other)
  Sender: FDA-Public Use
  Company Number: US-BAYER-200932694NA

PATIENT
  Age: 45 Year
  Sex: Female

DRUGS (3)
  1. BETASERON [Suspect]
     Dosage: 8 MIU, QOD
     Route: 058
     Dates: start: 20101019
  2. BETASERON [Suspect]
     Dosage: 8 MIU, QOD
     Route: 058
     Dates: start: 20090410, end: 20100604
  3. BETASERON [Suspect]
     Indication: RELAPSING-REMITTING MULTIPLE SCLEROSIS
     Route: 058
     Dates: start: 20010308, end: 20060606

REACTIONS (11)
  - FACE INJURY [None]
  - HEAD INJURY [None]
  - LIP INJURY [None]
  - PERIORBITAL HAEMATOMA [None]
  - MUSCULAR WEAKNESS [None]
  - CONTUSION [None]
  - COORDINATION ABNORMAL [None]
  - CONVULSION [None]
  - FALL [None]
  - MULTIPLE SCLEROSIS RELAPSE [None]
  - WALKING AID USER [None]
